FAERS Safety Report 20231798 (Version 7)
Quarter: 2022Q1

REPORT INFORMATION
  Report Type: Report from Study
  Country: US (occurrence: US)
  Receive Date: 20211227
  Receipt Date: 20220325
  Transmission Date: 20220424
  Serious: No
  Sender: FDA-Public Use
  Company Number: US-NOVARTISTESTPH-NVSC2021US296027

PATIENT
  Age: 63 Year
  Sex: Male

DRUGS (4)
  1. ENTRESTO [Suspect]
     Active Substance: SACUBITRIL\VALSARTAN
     Indication: Cardiac failure
     Dosage: 24.26 MG, BID
     Route: 048
     Dates: start: 20211213
  2. SPIRONOLACTONE [Concomitant]
     Active Substance: SPIRONOLACTONE
     Indication: Cardiac failure
     Dosage: 25 MG, QD
     Route: 048
     Dates: start: 20211213
  3. METOPROLOL SUCCINATE [Concomitant]
     Active Substance: METOPROLOL SUCCINATE
     Indication: Heart rate
     Dosage: 25 MG, QD (ONE HALF TABLET)
     Route: 048
     Dates: start: 20220201
  4. METOPROLOL TARTRATE [Concomitant]
     Active Substance: METOPROLOL TARTRATE
     Indication: Heart rate
     Dosage: UNK
     Route: 048
     Dates: start: 202112

REACTIONS (18)
  - Feeling cold [Unknown]
  - Feeding disorder [Unknown]
  - Energy increased [Recovering/Resolving]
  - Heart rate abnormal [Unknown]
  - Fluid retention [Recovering/Resolving]
  - Weight increased [Unknown]
  - Blood cholesterol increased [Unknown]
  - Glucose tolerance impaired [Unknown]
  - Asthenia [Unknown]
  - Hypotension [Recovered/Resolved]
  - Hypotension [Recovering/Resolving]
  - Hypotension [Not Recovered/Not Resolved]
  - Hypotension [Recovered/Resolved]
  - Peripheral swelling [Not Recovered/Not Resolved]
  - Weight decreased [Recovering/Resolving]
  - Waist circumference decreased [Unknown]
  - Contusion [Recovering/Resolving]
  - Gout [Recovered/Resolved]

NARRATIVE: CASE EVENT DATE: 20211201
